FAERS Safety Report 10379384 (Version 3)
Quarter: 2014Q3

REPORT INFORMATION
  Report Type: Spontaneous
  Country: FI (occurrence: FI)
  Receive Date: 20140812
  Receipt Date: 20140909
  Transmission Date: 20150326
  Serious: Yes (Other)
  Sender: FDA-Public Use
  Company Number: FI-PFIZER INC-2014224736

PATIENT
  Age: 23 Year
  Sex: Male
  Weight: 80 kg

DRUGS (2)
  1. CHAMPIX [Interacting]
     Active Substance: VARENICLINE TARTRATE
     Dosage: 1 MG, DAILY
     Dates: start: 201404, end: 20140413
  2. CHAMPIX [Suspect]
     Active Substance: VARENICLINE TARTRATE
     Indication: SMOKING CESSATION THERAPY
     Dosage: UNK
     Route: 048
     Dates: start: 20140403, end: 201404

REACTIONS (5)
  - Confusional state [Recovered/Resolved]
  - Amnesia [Recovered/Resolved]
  - Anger [Recovered/Resolved]
  - Abnormal behaviour [Recovered/Resolved]
  - Alcohol interaction [Recovered/Resolved]

NARRATIVE: CASE EVENT DATE: 20140413
